FAERS Safety Report 16866765 (Version 1)
Quarter: 2019Q3

REPORT INFORMATION
  Report Type: Spontaneous
  Country: US (occurrence: US)
  Receive Date: 20190806
  Receipt Date: 20190806
  Transmission Date: 20191007
  Serious: No
  Sender: FDA-Public Use
  Company Number: None

PATIENT
  Age: 58 Year
  Sex: Male

DRUGS (2)
  1. AMIKACIN. [Concomitant]
     Active Substance: AMIKACIN
  2. IMIPENEM/CILASTATIN 500 MG FRESENIUS KABI USA [Suspect]
     Active Substance: CILASTATIN SODIUM\IMIPENEM
     Indication: BACTERIAL INFECTION
     Dosage: ?          OTHER FREQUENCY:EVERY8HOURS ;?
     Route: 042
     Dates: start: 20190719

REACTIONS (2)
  - Tongue discolouration [None]
  - Therapy cessation [None]

NARRATIVE: CASE EVENT DATE: 20190728
